FAERS Safety Report 17662114 (Version 2)
Quarter: 2020Q2

REPORT INFORMATION
  Report Type: Report from Study
  Country: MX (occurrence: MX)
  Receive Date: 20200413
  Receipt Date: 20200423
  Transmission Date: 20200713
  Serious: Yes (Other)
  Sender: FDA-Public Use
  Company Number: NVSC2020MX098035

PATIENT
  Sex: Male
  Weight: 103 kg

DRUGS (2)
  1. EXFORGE HCT [Suspect]
     Active Substance: AMLODIPINE BESYLATE\HYDROCHLOROTHIAZIDE\VALSARTAN
     Indication: ARRHYTHMIA
  2. EXFORGE HCT [Suspect]
     Active Substance: AMLODIPINE BESYLATE\HYDROCHLOROTHIAZIDE\VALSARTAN
     Indication: HYPERTENSION
     Dosage: 0.5 (5/160/12.5), BID
     Route: 048
     Dates: start: 201809

REACTIONS (6)
  - Product prescribing error [Unknown]
  - Tinnitus [Unknown]
  - Incorrect dose administered [Unknown]
  - Drug dependence [Unknown]
  - Headache [Unknown]
  - Intentional product use issue [Unknown]
